FAERS Safety Report 19897011 (Version 3)
Quarter: 2022Q1

REPORT INFORMATION
  Report Type: Report from Study
  Country: JP (occurrence: JP)
  Receive Date: 20210930
  Receipt Date: 20220119
  Transmission Date: 20220424
  Serious: Yes (Other)
  Sender: FDA-Public Use
  Company Number: JP-TAKEDA-2021TJP095154

PATIENT
  Age: 23 Year
  Sex: Female
  Weight: 53 kg

DRUGS (13)
  1. VORTIOXETINE [Suspect]
     Active Substance: VORTIOXETINE
     Indication: Major depression
     Dosage: 10 MILLIGRAM, QD
     Route: 065
     Dates: start: 20210824
  2. VORTIOXETINE [Suspect]
     Active Substance: VORTIOXETINE
     Dosage: 20 MILLIGRAM, QD
     Route: 065
     Dates: start: 20211101, end: 20220111
  3. SULPIRIDE [Concomitant]
     Active Substance: SULPIRIDE
     Indication: Major depression
     Dosage: 50 MILLIGRAM, TID
     Route: 048
     Dates: start: 20210728, end: 20210823
  4. SULPIRIDE [Concomitant]
     Active Substance: SULPIRIDE
     Dosage: 50 MILLIGRAM, BID
     Route: 048
     Dates: start: 20210824, end: 20210830
  5. SULPIRIDE [Concomitant]
     Active Substance: SULPIRIDE
     Dosage: 50 MILLIGRAM, QD
     Route: 048
     Dates: start: 20210831, end: 20210913
  6. DIETARY SUPPLEMENT\PROBIOTICS [Concomitant]
     Active Substance: DIETARY SUPPLEMENT\PROBIOTICS
     Indication: Irritable bowel syndrome
     Dosage: 12 MILLIGRAM, TID
     Route: 048
     Dates: start: 20210804, end: 20210920
  7. ETHYL LOFLAZEPATE [Concomitant]
     Active Substance: ETHYL LOFLAZEPATE
     Indication: Major depression
     Dosage: 1 MILLIGRAM, QD
     Route: 048
     Dates: start: 20210728, end: 20210920
  8. HEPARINOID [Concomitant]
     Indication: Dermatitis atopic
     Dosage: UNK
     Route: 062
     Dates: start: 20210411
  9. SAHNE [Concomitant]
     Indication: Dermatitis atopic
     Dosage: UNK
     Route: 062
     Dates: start: 20210411
  10. SALEX [Concomitant]
     Active Substance: SALICYLIC ACID
     Indication: Dermatitis atopic
     Dosage: UNK
     Route: 062
     Dates: start: 20210411
  11. TACROLIMUS [Concomitant]
     Active Substance: TACROLIMUS
     Indication: Dermatitis atopic
     Dosage: UNK
     Route: 062
     Dates: start: 20210411
  12. ZEBIAX [Concomitant]
     Indication: Acne
     Dosage: UNK
     Route: 062
     Dates: start: 20210717
  13. MOSAPRIDE CITRATE [Concomitant]
     Active Substance: MOSAPRIDE CITRATE
     Indication: Irritable bowel syndrome
     Dosage: 5 MILLIGRAM, BID
     Route: 048
     Dates: start: 20210831, end: 20211115

REACTIONS (2)
  - Genital haemorrhage [Recovered/Resolved]
  - Candida infection [Recovered/Resolved]

NARRATIVE: CASE EVENT DATE: 20210915
